FAERS Safety Report 13628075 (Version 1)
Quarter: 2017Q2

REPORT INFORMATION
  Report Type: Spontaneous
  Country: US (occurrence: US)
  Receive Date: 20170531
  Receipt Date: 20170531
  Transmission Date: 20170830
  Serious: Yes (Hospitalization, Other)
  Sender: FDA-Public Use
  Company Number: US-ASTELLAS-1703318

PATIENT
  Age: 78 Year
  Sex: Male

DRUGS (7)
  1. ZANTAC [Concomitant]
     Active Substance: RANITIDINE HYDROCHLORIDE
  2. ALLEGRA [Concomitant]
     Active Substance: FEXOFENADINE HYDROCHLORIDE
  3. ACETAMINOPHEN. [Concomitant]
     Active Substance: ACETAMINOPHEN
  4. BACTROBAN [Concomitant]
     Active Substance: MUPIROCIN\MUPIROCIN CALCIUM
  5. ASPIRIN. [Concomitant]
     Active Substance: ASPIRIN
  6. METOPROLOL SUCCINATE. [Concomitant]
     Active Substance: METOPROLOL SUCCINATE
  7. TARCEVA [Suspect]
     Active Substance: ERLOTINIB HYDROCHLORIDE
     Indication: LUNG NEOPLASM MALIGNANT
     Route: 048
     Dates: start: 20160112

REACTIONS (7)
  - Cough [Unknown]
  - Dyspnoea [Unknown]
  - Pneumonia [Unknown]
  - Rash [Unknown]
  - Gastrointestinal haemorrhage [Unknown]
  - Gastric ulcer [Unknown]
  - Leukocytosis [Unknown]

NARRATIVE: CASE EVENT DATE: 20160125
